FAERS Safety Report 24767991 (Version 1)
Quarter: 2024Q4

REPORT INFORMATION
  Report Type: Spontaneous
  Country: CN (occurrence: CN)
  Receive Date: 20241223
  Receipt Date: 20241223
  Transmission Date: 20250114
  Serious: Yes (Hospitalization)
  Sender: NOVARTIS
  Company Number: CN-002147023-NVSC2024CN242841

PATIENT
  Age: 64 Year
  Sex: Male
  Weight: 65 kg

DRUGS (2)
  1. DABRAFENIB [Suspect]
     Active Substance: DABRAFENIB
     Indication: Lung neoplasm malignant
     Dosage: 150.000 MG, BID
     Route: 048
     Dates: start: 20240722, end: 20240806
  2. TRAMETINIB [Suspect]
     Active Substance: TRAMETINIB
     Indication: Lung neoplasm malignant
     Dosage: 2.000 MG, QD
     Route: 048
     Dates: start: 20240722, end: 20240806

REACTIONS (2)
  - Drug eruption [Recovering/Resolving]
  - Blood pressure increased [Unknown]

NARRATIVE: CASE EVENT DATE: 20240731
